FAERS Safety Report 9287909 (Version 3)
Quarter: 2013Q2

REPORT INFORMATION
  Report Type: Spontaneous
  Country: US (occurrence: US)
  Receive Date: 20130514
  Receipt Date: 20130607
  Transmission Date: 20140414
  Serious: Yes (Other)
  Sender: FDA-Public Use
  Company Number: US-BAYER-2013-059391

PATIENT
  Age: 69 Year
  Sex: Female
  Weight: 87.53 kg

DRUGS (12)
  1. AVELOX [Suspect]
     Indication: DYSPNOEA
     Dosage: UNK
     Dates: start: 2010
  2. AVELOX [Suspect]
     Indication: CHRONIC OBSTRUCTIVE PULMONARY DISEASE
     Dosage: UNK
     Dates: start: 201212
  3. AVELOX [Suspect]
     Indication: CHRONIC OBSTRUCTIVE PULMONARY DISEASE
     Dosage: UNK
  4. AVELOX [Suspect]
     Indication: PNEUMONIA
  5. LEVOTHYROXIN [Concomitant]
     Indication: THYROID DISORDER
     Dosage: 0.175 MG, QD
     Dates: start: 2012
  6. LISINOPRIL HYDROCHLORTHIAZID [Concomitant]
     Indication: HYPERTENSION
     Dosage: 20,25 QD
  7. DICLOFENAC [Concomitant]
     Indication: ARTHRITIS
     Dosage: 75 MG, QD
  8. EVISTA [RALOXIFENE HYDROCHLORIDE] [Concomitant]
     Indication: OSTEOARTHRITIS
     Dosage: 60 MG, QD
  9. ADVAIR [Concomitant]
     Indication: CHRONIC OBSTRUCTIVE PULMONARY DISEASE
     Dosage: 250/50 BID
  10. PROAIR HFA [Concomitant]
     Indication: CHRONIC OBSTRUCTIVE PULMONARY DISEASE
     Dosage: 500/50, PRN LONGTIME
  11. SPIRIVA [Concomitant]
  12. LICHIGEN [Concomitant]
     Dosage: UNK

REACTIONS (8)
  - Rotator cuff repair [None]
  - Pain [None]
  - Rotator cuff syndrome [None]
  - Pain in extremity [None]
  - Malaise [None]
  - Pain [None]
  - Discomfort [None]
  - Muscular weakness [None]
